FAERS Safety Report 8905168 (Version 2)
Quarter: 2013Q3

REPORT INFORMATION
  Report Type: Spontaneous
  Country: AR (occurrence: AR)
  Receive Date: 20121112
  Receipt Date: 20130912
  Transmission Date: 20140515
  Serious: No
  Sender: FDA-Public Use
  Company Number: PHHY2012AR103575

PATIENT
  Age: 74 Year
  Sex: Male

DRUGS (1)
  1. DIOVAN [Suspect]
     Indication: HYPERTENSION
     Dosage: 320 MG, DAILY

REACTIONS (2)
  - Eye injury [Not Recovered/Not Resolved]
  - Retinal injury [Not Recovered/Not Resolved]
